FAERS Safety Report 4808237-4 (Version None)
Quarter: 2005Q4

REPORT INFORMATION
  Report Type: 
  Country: None (occurrence: None)
  Receive Date: 20051021
  Receipt Date: 20051005
  Transmission Date: 20060501
  Serious: Yes (Death)
  Sender: FDA-Public Use
  Company Number: 12565

PATIENT
  Age: 18 Year
  Sex: Male

DRUGS (2)
  1. VINCRISTINE [Suspect]
     Indication: LEUKAEMIA
     Dates: start: 20010104
  2. METHOTREXATE [Concomitant]

REACTIONS (2)
  - DRUG ADMINISTRATION ERROR [None]
  - INCORRECT ROUTE OF DRUG ADMINISTRATION [None]
